FAERS Safety Report 4607399-1 (Version None)
Quarter: 2005Q1

REPORT INFORMATION
  Report Type: 
  Country: None (occurrence: None)
  Receive Date: 20050309
  Receipt Date: 20050218
  Transmission Date: 20050727
  Serious: Yes (Hospitalization)
  Sender: FDA-Public Use
  Company Number: 10240

PATIENT
  Age: 50 Year
  Sex: Female

DRUGS (8)
  1. CARBOPLATIN [Suspect]
     Indication: CHEMOTHERAPY
     Dosage: 350 MG ONCE IV
     Route: 042
     Dates: start: 20050207, end: 20050207
  2. CARBOPLATIN [Suspect]
     Indication: OVARIAN CANCER
     Dosage: 350 MG ONCE IV
     Route: 042
     Dates: start: 20050207, end: 20050207
  3. TROPISETRON [Concomitant]
  4. DEXAMETHASONE [Concomitant]
  5. CYCLOPHOSPHAMIDE [Concomitant]
  6. PROMETHAZINE [Concomitant]
  7. MACROGOL [Concomitant]
  8. PROCHLORPERAZINE [Concomitant]

REACTIONS (4)
  - LOSS OF CONSCIOUSNESS [None]
  - MALAISE [None]
  - NAUSEA [None]
  - PARAESTHESIA ORAL [None]
